FAERS Safety Report 5856671-6 (Version None)
Quarter: 2008Q3

REPORT INFORMATION
  Report Type: 
  Country: None (occurrence: None)
  Receive Date: 20080825
  Receipt Date: 20080801
  Transmission Date: 20090109
  Serious: Yes (Other)
  Sender: FDA-Public Use
  Company Number: PHHY2008IT12409

PATIENT
  Sex: Male

DRUGS (5)
  1. TAREG [Suspect]
     Indication: PULMONARY ARTERIAL HYPERTENSION
     Dosage: 160 MG PER DAY
     Route: 048
     Dates: start: 20080612, end: 20080615
  2. LANZOPRAZOL [Concomitant]
  3. ASPIRIN [Concomitant]
  4. CONGESCOR [Concomitant]
  5. TORVAST [Concomitant]

REACTIONS (2)
  - MUCOSAL EXFOLIATION [None]
  - OEDEMA MOUTH [None]
